FAERS Safety Report 8971589 (Version 1)
Quarter: 2012Q4

REPORT INFORMATION
  Report Type: 
  Country: GB (occurrence: US)
  Receive Date: 20121217
  Receipt Date: 20121217
  Transmission Date: 20130627
  Serious: Yes (Death)
  Sender: FDA-Public Use
  Company Number: US-009507513-1212USA005382

PATIENT
  Age: 23 Year
  Sex: Female

DRUGS (7)
  1. DEXAMETHASONE [Suspect]
     Indication: ACUTE LYMPHOCYTIC LEUKAEMIA
     Dosage: 8 mg, qd
     Route: 048
  2. DEXAMETHASONE [Suspect]
     Dosage: 10 mg, qd
     Route: 048
  3. ASPARAGINASE (AS DRUG) [Concomitant]
     Indication: ACUTE LYMPHOCYTIC LEUKAEMIA
     Dosage: 60000 units, qd
     Route: 042
  4. ASPARAGINASE (AS DRUG) [Concomitant]
     Dosage: 1000 units/kg, qd
     Route: 042
  5. VINCRISTINE SULFATE [Concomitant]
     Indication: ACUTE LYMPHOCYTIC LEUKAEMIA
     Dosage: 2 mg, qw
     Route: 042
  6. VINCRISTINE SULFATE [Concomitant]
     Dosage: 2 mg, qw
     Route: 042
  7. CYCLOPHOSPHAMIDE [Concomitant]
     Indication: ACUTE LYMPHOCYTIC LEUKAEMIA
     Dosage: 600 mg/m2, qw
     Route: 042

REACTIONS (1)
  - Pancreatitis haemorrhagic [Fatal]
